FAERS Safety Report 10230933 (Version 1)
Quarter: 2014Q2

REPORT INFORMATION
  Report Type: Spontaneous
  Country: CA (occurrence: CA)
  Receive Date: 20140611
  Receipt Date: 20140611
  Transmission Date: 20141212
  Serious: Yes (Other)
  Sender: FDA-Public Use
  Company Number: CA-ASTRAZENECA-2014SE39651

PATIENT
  Age: 76 Year
  Sex: Female

DRUGS (14)
  1. CRESTOR [Suspect]
     Indication: ACUTE MYOCARDIAL INFARCTION
     Route: 048
     Dates: end: 201404
  2. CRESTOR [Suspect]
     Indication: CORONARY ARTERIAL STENT INSERTION
     Route: 048
     Dates: end: 201404
  3. CRESTOR [Suspect]
     Indication: ACUTE MYOCARDIAL INFARCTION
     Route: 048
     Dates: start: 201404, end: 20140522
  4. CRESTOR [Suspect]
     Indication: CORONARY ARTERIAL STENT INSERTION
     Route: 048
     Dates: start: 201404, end: 20140522
  5. BRILINTA [Suspect]
     Indication: STENT PLACEMENT
     Route: 048
     Dates: start: 201404
  6. COENZYME Q10 [Concomitant]
  7. PANTOPRAZOLE [Concomitant]
  8. ASPIRIN [Concomitant]
     Indication: ACUTE MYOCARDIAL INFARCTION
  9. FLUTICAZONE [Concomitant]
     Indication: ASTHMA
  10. ZANHALE [Concomitant]
     Indication: ASTHMA
  11. EZETIMIBE [Concomitant]
     Indication: DYSLIPIDAEMIA
  12. VENTOLIN [Concomitant]
     Indication: ASTHMA
     Dosage: PER NEEDED
  13. ALFUZOSIN [Concomitant]
     Indication: BENIGN PROSTATIC HYPERPLASIA
  14. FINESTERIDE [Concomitant]
     Indication: BENIGN PROSTATIC HYPERPLASIA

REACTIONS (3)
  - Acute myocardial infarction [Unknown]
  - Rhabdomyolysis [Unknown]
  - Intentional product misuse [Recovered/Resolved]
